FAERS Safety Report 6760863-1 (Version None)
Quarter: 2010Q2

REPORT INFORMATION
  Report Type: 
  Country: None (occurrence: None)
  Receive Date: 20100608
  Receipt Date: 20100601
  Transmission Date: 20101027
  Serious: Yes (Other)
  Sender: FDA-Public Use
  Company Number: PHHY2009ZA46233

PATIENT
  Age: 57 Year
  Sex: Female

DRUGS (5)
  1. DIOVAN HCT [Suspect]
     Indication: HYPERTENSION
     Dosage: 80/12.5 MG, UNK
  2. CALCIUM CARBONATE [Concomitant]
  3. MAGNESIUM [Concomitant]
  4. ARTHROCHOICE [Concomitant]
     Indication: ARTHRALGIA
  5. ELTROXIN [Concomitant]
     Indication: HYPERTHYROIDISM

REACTIONS (11)
  - ANXIETY [None]
  - FATIGUE [None]
  - FEELING HOT [None]
  - HEADACHE [None]
  - HERNIA [None]
  - HYPOTENSION [None]
  - LOSS OF CONSCIOUSNESS [None]
  - MIGRAINE [None]
  - QUALITY OF LIFE DECREASED [None]
  - SYNCOPE [None]
  - WEIGHT INCREASED [None]
